FAERS Safety Report 6093814-6 (Version None)
Quarter: 2009Q1

REPORT INFORMATION
  Report Type: 
  Country: None (occurrence: None)
  Receive Date: 20090223
  Receipt Date: 20090205
  Transmission Date: 20090719
  Serious: Yes (Congenital Anomaly)
  Sender: FDA-Public Use
  Company Number: 8043087

PATIENT

DRUGS (1)
  1. KEPPRA [Suspect]
     Dosage: NI TRP

REACTIONS (4)
  - ADACTYLY [None]
  - CONGENITAL FOOT MALFORMATION [None]
  - MATERNAL DRUGS AFFECTING FOETUS [None]
  - MULTIPLE CONGENITAL ABNORMALITIES [None]
